FAERS Safety Report 22337691 (Version 1)
Quarter: 2023Q2

REPORT INFORMATION
  Report Type: Spontaneous
  Country: US (occurrence: None)
  Receive Date: 20230517
  Receipt Date: 20230517
  Transmission Date: 20230722
  Serious: Yes (Hospitalization)
  Sender: FDA-Public Use
  Company Number: None

PATIENT
  Age: 18 Year
  Sex: Male

DRUGS (1)
  1. .DELTA.8-TETRAHYDROCANNABINOL\.DELTA.10-TETRAHYDROCANNABINOL\HERBALS [Suspect]
     Active Substance: .DELTA.10-TETRAHYDROCANNABINOL\.DELTA.8-TETRAHYDROCANNABINOL\HERBALS
     Dosage: OTHER QUANTITY : .5 GUMMY PIECE;?
     Route: 048
     Dates: start: 20230510, end: 20230510

REACTIONS (11)
  - Hallucination [None]
  - Vomiting [None]
  - Dizziness [None]
  - Seizure [None]
  - Haemorrhage [None]
  - Paranoia [None]
  - Pain [None]
  - Nausea [None]
  - Anxiety [None]
  - Product advertising issue [None]
  - Neurological symptom [None]

NARRATIVE: CASE EVENT DATE: 20230510
